FAERS Safety Report 20145104 (Version 1)
Quarter: 2021Q4

REPORT INFORMATION
  Report Type: Spontaneous
  Country: FR (occurrence: None)
  Receive Date: 20211203
  Receipt Date: 20211203
  Transmission Date: 20220303
  Serious: Yes (Death, Other)
  Sender: FDA-Public Use
  Company Number: FR-Eisai Medical Research-EC-2021-104276

PATIENT
  Sex: Female

DRUGS (1)
  1. RABEPRAZOLE SODIUM [Suspect]
     Active Substance: RABEPRAZOLE SODIUM
     Indication: Gastrooesophageal reflux disease
     Route: 048

REACTIONS (5)
  - Intestinal gangrene [Fatal]
  - Clostridium difficile colitis [Fatal]
  - Strangulated hernia [Unknown]
  - Hernial eventration [Unknown]
  - Hernia obstructive [Unknown]

NARRATIVE: CASE EVENT DATE: 19960101
